FAERS Safety Report 12723729 (Version 1)
Quarter: 2016Q3

REPORT INFORMATION
  Report Type: Spontaneous
  Country: TH (occurrence: TH)
  Receive Date: 20160908
  Receipt Date: 20160908
  Transmission Date: 20161109
  Serious: Yes (Other)
  Sender: FDA-Public Use
  Company Number: PHHY2016TH121503

PATIENT
  Age: 80 Year
  Sex: Male

DRUGS (3)
  1. EVEROLIMUS [Suspect]
     Active Substance: EVEROLIMUS
     Dosage: 10 MG, QOD
     Route: 065
  2. EVEROLIMUS [Suspect]
     Active Substance: EVEROLIMUS
     Indication: RENAL CELL CARCINOMA
     Dosage: 10 MG, QD
     Route: 065
     Dates: start: 201512
  3. EVEROLIMUS [Suspect]
     Active Substance: EVEROLIMUS
     Dosage: 10 MG, 2 DAY ON, 1 DAY OFF SCHEDULE
     Route: 065

REACTIONS (17)
  - Hypothyroidism [Recovering/Resolving]
  - Cough [Recovering/Resolving]
  - Renal failure [Recovering/Resolving]
  - Left ventricular hypertrophy [Recovering/Resolving]
  - Hypertension [Recovering/Resolving]
  - Pleural effusion [Recovering/Resolving]
  - Dyslipidaemia [Recovering/Resolving]
  - Pancytopenia [Recovering/Resolving]
  - Pneumonitis [Recovered/Resolved]
  - Stomatitis [Recovering/Resolving]
  - Hypertensive cardiomyopathy [Recovering/Resolving]
  - Cardiac failure congestive [Recovering/Resolving]
  - Metastases to lung [Recovering/Resolving]
  - Rash [Recovering/Resolving]
  - Diarrhoea [Recovering/Resolving]
  - Malignant neoplasm progression [Recovering/Resolving]
  - Dyspnoea [Recovering/Resolving]
